FAERS Safety Report 8550720-2 (Version None)
Quarter: 2012Q3

REPORT INFORMATION
  Report Type: 
  Country: None (occurrence: None)
  Receive Date: 20120730
  Receipt Date: 20120717
  Transmission Date: 20120928
  Serious: Yes (Other)
  Sender: FDA-Public Use
  Company Number: CH-GLAXOSMITHKLINE-B0816613A

PATIENT
  Age: 31 Year
  Sex: Female

DRUGS (3)
  1. DEPAKENE [Concomitant]
     Indication: EPILEPSY
     Route: 048
  2. ETHINYL ESTRADIOL [Concomitant]
     Indication: CONTRACEPTION
     Route: 048
  3. LAMICTAL [Suspect]
     Indication: EPILEPSY
     Dosage: 25MG EVERY 3 DAYS
     Route: 048
     Dates: start: 20120604, end: 20120608

REACTIONS (3)
  - MOUTH ULCERATION [None]
  - GENITAL ULCERATION [None]
  - RASH MACULAR [None]
